FAERS Safety Report 23602438 (Version 1)
Quarter: 2024Q1

REPORT INFORMATION
  Report Type: Spontaneous
  Country: US (occurrence: None)
  Receive Date: 20240306
  Receipt Date: 20240306
  Transmission Date: 20240410
  Serious: Yes (Hospitalization)
  Sender: FDA-Public Use
  Company Number: None

PATIENT
  Sex: Female

DRUGS (2)
  1. ZIEXTENZO [Suspect]
     Active Substance: PEGFILGRASTIM-BMEZ
     Indication: Malignant connective tissue neoplasm
     Dosage: FREQUENCY : AS DIRECTED;?
     Route: 058
     Dates: start: 202307
  2. NYVEORIA PFS [Concomitant]

REACTIONS (2)
  - Blepharitis [None]
  - Blindness [None]
